FAERS Safety Report 4452210-5 (Version None)
Quarter: 2004Q3

REPORT INFORMATION
  Report Type: 
  Country: None (occurrence: None)
  Receive Date: 20040917
  Receipt Date: 20040914
  Transmission Date: 20050211
  Serious: Yes (Death)
  Sender: FDA-Public Use
  Company Number: US-JNJFOC-20040904790

PATIENT
  Sex: Female

DRUGS (1)
  1. SPORANOX [Suspect]
     Route: 049
     Dates: start: 20020501

REACTIONS (2)
  - LUNG TRANSPLANT REJECTION [None]
  - TRANSPLANT REJECTION [None]
